FAERS Safety Report 22908472 (Version 4)
Quarter: 2024Q3

REPORT INFORMATION
  Report Type: Spontaneous
  Country: US (occurrence: US)
  Receive Date: 20230905
  Receipt Date: 20240909
  Transmission Date: 20241017
  Serious: No
  Sender: PFIZER
  Company Number: US-PFIZER INC-PV202300097625

PATIENT
  Age: 69 Year
  Sex: Female

DRUGS (3)
  1. OXBRYTA [Suspect]
     Active Substance: VOXELOTOR
     Indication: Sickle cell disease
     Dosage: 1500 MG, 1X/DAY (500MG 3 TABLETS ONCE DAILY)
     Route: 048
     Dates: start: 202011
  2. OXBRYTA [Suspect]
     Active Substance: VOXELOTOR
     Dosage: 1500 MG, 1X/DAY (500MG 3 TABLETS ONCE DAILY)
     Route: 048
     Dates: start: 202110
  3. PROCRIT [Concomitant]
     Active Substance: ERYTHROPOIETIN
     Dosage: UNK, EVERY 2 WEEKS

REACTIONS (1)
  - Anaemia [Recovering/Resolving]
